FAERS Safety Report 17802182 (Version 1)
Quarter: 2020Q2

REPORT INFORMATION
  Report Type: Spontaneous
  Country: US (occurrence: US)
  Receive Date: 20200518
  Receipt Date: 20200518
  Transmission Date: 20200714
  Serious: Yes (Death)
  Sender: FDA-Public Use
  Company Number: None

PATIENT
  Age: 69 Year
  Sex: Male

DRUGS (8)
  1. FLUTICASONE SPR 50 MCG [Concomitant]
  2. ALBUTEROL AER HFA [Concomitant]
  3. REPATHA [Suspect]
     Active Substance: EVOLOCUMAB
     Indication: CARDIAC DISORDER
     Dosage: ?          OTHER FREQUENCY:EVERY 2 WEEKS;?
     Route: 058
     Dates: start: 20191021, end: 20200515
  4. HYDROCHLOROTHIAZIDE TAB 25 MG [Concomitant]
  5. CLOBETASOL SHA 0.05% [Concomitant]
  6. METOPROLOL TAR TAB 25 MG [Concomitant]
  7. ALPRAZOLAM TAB 0.5 MG [Concomitant]
  8. ALPRAZOLAM TAB 0.5 MG [Concomitant]

REACTIONS (1)
  - Death [None]
